APPROVED DRUG PRODUCT: BUTALBITAL AND ACETAMINOPHEN
Active Ingredient: ACETAMINOPHEN; BUTALBITAL
Strength: 300MG;50MG
Dosage Form/Route: TABLET;ORAL
Application: A090956 | Product #001 | TE Code: AA
Applicant: LGM PHARMA SOLUTIONS LLC
Approved: Aug 23, 2011 | RLD: No | RS: Yes | Type: RX